FAERS Safety Report 14391625 (Version 1)
Quarter: 2018Q1

REPORT INFORMATION
  Report Type: Spontaneous
  Country: US (occurrence: US)
  Receive Date: 20180111
  Receipt Date: 20180111
  Transmission Date: 20180509
  Serious: Yes (Disabling, Other)
  Sender: FDA-Public Use
  Company Number: None

PATIENT
  Sex: Male
  Weight: 104.33 kg

DRUGS (9)
  1. OXYCODONE [Concomitant]
     Active Substance: OXYCODONE
  2. MYRRH OIL [Concomitant]
  3. PANCREAZE [Concomitant]
     Active Substance: PANCRELIPASE AMYLASE\PANCRELIPASE LIPASE\PANCRELIPASE PROTEASE
  4. FRANKINCENSE OIL [Concomitant]
     Active Substance: FRANKINCENSE OIL
  5. ELIGARD [Suspect]
     Active Substance: LEUPROLIDE ACETATE
  6. CANNABIS OIL [Concomitant]
     Active Substance: CANNABIS SATIVA SEED OIL
  7. ATACAND [Concomitant]
     Active Substance: CANDESARTAN CILEXETIL
  8. OPIUM. [Concomitant]
     Active Substance: OPIUM
  9. VITAMIN D3 [Concomitant]
     Active Substance: CHOLECALCIFEROL

REACTIONS (36)
  - Condition aggravated [None]
  - Pain [None]
  - Fatigue [None]
  - Blood glucose increased [None]
  - Impaired work ability [None]
  - Muscular weakness [None]
  - Confusional state [None]
  - Memory impairment [None]
  - Hot flush [None]
  - Cold sweat [None]
  - Blood pressure increased [None]
  - Peripheral swelling [None]
  - Asthenia [None]
  - Autoimmune thyroiditis [None]
  - Paraesthesia [None]
  - Depression [None]
  - Chills [None]
  - Headache [None]
  - Joint swelling [None]
  - Mobility decreased [None]
  - Arthralgia [None]
  - Vision blurred [None]
  - Emotional distress [None]
  - Amnesia [None]
  - Pyrexia [None]
  - Pollakiuria [None]
  - Dizziness [None]
  - Libido decreased [None]
  - Hyperhidrosis [None]
  - Bone pain [None]
  - Mood altered [None]
  - Diarrhoea [None]
  - Night sweats [None]
  - Burning sensation [None]
  - Visual impairment [None]
  - Phimosis [None]

NARRATIVE: CASE EVENT DATE: 20160125
